FAERS Safety Report 11859877 (Version 1)
Quarter: 2015Q4

REPORT INFORMATION
  Report Type: Spontaneous
  Country: US (occurrence: US)
  Receive Date: 20151222
  Receipt Date: 20151222
  Transmission Date: 20160305
  Serious: No
  Sender: FDA-Public Use
  Company Number: US-PFIZER INC-2015449252

PATIENT

DRUGS (1)
  1. VIAGRA [Suspect]
     Active Substance: SILDENAFIL CITRATE
     Dosage: UNK(1/8 OF THE 100MG TABLET)

REACTIONS (4)
  - Feeling abnormal [Unknown]
  - Headache [Unknown]
  - Feeling hot [Unknown]
  - Wrong technique in product usage process [Unknown]
